FAERS Safety Report 5163837-X (Version None)
Quarter: 2006Q4

REPORT INFORMATION
  Report Type: 
  Country: None (occurrence: None)
  Receive Date: 20061124
  Receipt Date: 20061114
  Transmission Date: 20070319
  Serious: Yes (Death)
  Sender: FDA-Public Use
  Company Number: 2006140351

PATIENT
  Sex: Female

DRUGS (1)
  1. GEODON [Suspect]
     Dosage: (40 MG)

REACTIONS (2)
  - PULMONARY OEDEMA [None]
  - RESPIRATORY DISTRESS [None]
